FAERS Safety Report 4640568-3 (Version None)
Quarter: 2005Q2

REPORT INFORMATION
  Report Type: 
  Country: None (occurrence: None)
  Receive Date: 20050418
  Receipt Date: 20050414
  Transmission Date: 20051028
  Serious: Yes (Other)
  Sender: FDA-Public Use
  Company Number: 213385

PATIENT
  Age: 2 Year

DRUGS (1)
  1. NUTROPIN AQ [Suspect]
     Indication: FAILURE TO THRIVE

REACTIONS (1)
  - HEPATOBLASTOMA [None]
